FAERS Safety Report 7103799-9 (Version None)
Quarter: 2010Q4

REPORT INFORMATION
  Report Type: 
  Country: None (occurrence: None)
  Receive Date: 20101115
  Receipt Date: 20101108
  Transmission Date: 20110411
  Serious: Yes (Other)
  Sender: FDA-Public Use
  Company Number: JP-PFIZER INC-2010147530

PATIENT

DRUGS (2)
  1. CABERGOLINE [Suspect]
     Indication: PITUITARY TUMOUR BENIGN
     Dosage: 0.25 MG, WEEKLY
     Route: 048
     Dates: start: 20081201
  2. CABERGOLINE [Suspect]
     Dosage: 0.5 MG, WEEKLY
     Route: 048

REACTIONS (1)
  - HEPATIC FUNCTION ABNORMAL [None]
